FAERS Safety Report 7457162-1 (Version None)
Quarter: 2011Q1

REPORT INFORMATION
  Report Type: 
  Country: None (occurrence: None)
  Receive Date: 20110302
  Receipt Date: 20101213
  Transmission Date: 20110831
  Serious: No
  Sender: FDA-Public Use
  Company Number: 023740

PATIENT
  Sex: Female
  Weight: 52.1 kg

DRUGS (6)
  1. CIMZIA [Suspect]
     Indication: RHEUMATOID ARTHRITIS
     Dosage: (ONE SHOT SUBCUTANEOUS), (2 SHOTS SUBCUTANEOUS)
     Route: 058
     Dates: start: 20100101
  2. CIMZIA [Suspect]
     Indication: RHEUMATOID ARTHRITIS
     Dosage: (ONE SHOT SUBCUTANEOUS), (2 SHOTS SUBCUTANEOUS)
     Route: 058
     Dates: start: 20100108, end: 20100101
  3. HYDROXYCHLOROQUINE SULFATE [Concomitant]
  4. SULFASALAZINE [Concomitant]
  5. PLAVIX [Concomitant]
  6. LIPITOR [Concomitant]

REACTIONS (3)
  - NAIL DISORDER [None]
  - GINGIVAL BLEEDING [None]
  - ECZEMA [None]
